FAERS Safety Report 9432040 (Version 1)
Quarter: 2013Q3

REPORT INFORMATION
  Report Type: Spontaneous
  Country: JP (occurrence: None)
  Receive Date: 20130726
  Receipt Date: 20130726
  Transmission Date: 20140515
  Serious: Yes (Other)
  Sender: FDA-Public Use
  Company Number: FK201302671

PATIENT
  Age: 37 Year
  Sex: Female

DRUGS (5)
  1. METHYLPREDNISOLONE [Suspect]
     Indication: SYSTEMIC LUPUS ERYTHEMATOSUS
  2. PREDNISOLONE (PREDNISOLONE) [Suspect]
     Indication: SYSTEMIC LUPUS ERYTHEMATOSUS
     Dosage: 40MG 1 IN 1D ORAL
     Route: 048
  3. TACROLIMUS (TACROLIMUS) [Concomitant]
  4. ALBUMIN (ALBUMIN) [Concomitant]
  5. DIURETICS (DIURETICS) [Concomitant]

REACTIONS (2)
  - Chorioretinopathy [None]
  - Chorioretinopathy [None]
